FAERS Safety Report 25186501 (Version 3)
Quarter: 2025Q2

REPORT INFORMATION
  Report Type: Report from Study
  Country: JP (occurrence: JP)
  Receive Date: 20250411
  Receipt Date: 20250515
  Transmission Date: 20250717
  Serious: Yes (Hospitalization)
  Sender: IPSEN BIOPHARMACEUTICALS, INC.
  Company Number: JP-IPSEN Group, Research and Development-2025-08140

PATIENT
  Age: 73 Year
  Sex: Male
  Weight: 68.8 kg

DRUGS (24)
  1. ONIVYDE [Suspect]
     Active Substance: IRINOTECAN HYDROCHLORIDE
     Indication: Pancreatic carcinoma
     Dosage: 56 MG/M2, 1X/2WKS
     Route: 042
     Dates: start: 20241209, end: 2025
  2. ONIVYDE [Suspect]
     Active Substance: IRINOTECAN HYDROCHLORIDE
     Dosage: 56 MG/M2, 1X/2WKS
     Route: 042
     Dates: start: 20250317
  3. FLUOROURACIL [Concomitant]
     Active Substance: FLUOROURACIL
     Indication: Pancreatic carcinoma
     Route: 042
     Dates: start: 20241209
  4. MIROGABALIN BESYLATE [Concomitant]
     Active Substance: MIROGABALIN BESYLATE
     Indication: Peripheral sensory neuropathy
     Dosage: 10 MG, BID (AFTER BREAKFAST AND DINNER)
     Route: 048
     Dates: start: 20240926, end: 202503
  5. MIROGABALIN BESYLATE [Concomitant]
     Active Substance: MIROGABALIN BESYLATE
     Dosage: 10 MG, BID  (AFTER BREAKFAST AND DINNER)
     Route: 048
     Dates: start: 20250330
  6. METHYLCOBALAMIN [Concomitant]
     Active Substance: METHYLCOBALAMIN
     Indication: Peripheral sensory neuropathy
     Dosage: 500 ?G, TID (AFTER MEALS)
     Route: 048
     Dates: start: 20240919, end: 202503
  7. METHYLCOBALAMIN [Concomitant]
     Active Substance: METHYLCOBALAMIN
     Dosage: 500 ?G, TID (AFTER MEALS)
     Route: 048
     Dates: start: 20250330
  8. PANCRELIPASE [Concomitant]
     Active Substance: PANCRELIPASE
     Indication: Pancreatic carcinoma
     Dosage: 600 MG, TID(AFTER MEALS)
     Route: 048
     Dates: start: 20240705, end: 202503
  9. PANCRELIPASE [Concomitant]
     Active Substance: PANCRELIPASE
     Dosage: 600 MG, TID(AFTER MEALS)
     Route: 048
     Dates: start: 20250330
  10. ROSUVASTATIN CALCIUM [Concomitant]
     Active Substance: ROSUVASTATIN CALCIUM
     Indication: Dyslipidaemia
     Dosage: 2.5 MG, QD (AFTER BREAKFAST)
     Route: 048
     Dates: end: 202503
  11. ROSUVASTATIN CALCIUM [Concomitant]
     Active Substance: ROSUVASTATIN CALCIUM
     Dosage: 2.5 MG, QD (AFTER BREAKFAST)
     Route: 048
     Dates: start: 20250330
  12. BISOPROLOL FUMARATE [Concomitant]
     Active Substance: BISOPROLOL FUMARATE
     Indication: Hypertension
     Dosage: 0.625 MG, QD (AFTER BREAKFAST)
     Route: 048
     Dates: end: 202503
  13. BISOPROLOL FUMARATE [Concomitant]
     Active Substance: BISOPROLOL FUMARATE
     Dosage: 0.625 MG, QD (AFTER BREAKFAST)
     Route: 048
     Dates: start: 20250330
  14. ASPIRIN [Concomitant]
     Active Substance: ASPIRIN
     Indication: Thrombosis prophylaxis
     Dosage: 100 MG, QD (AFTER BREAKFAST)
     Route: 048
     Dates: end: 202503
  15. ASPIRIN [Concomitant]
     Active Substance: ASPIRIN
     Dosage: 100 MG, QD (AFTER BREAKFAST)
     Route: 048
     Dates: start: 20250330
  16. ENTRESTO [Concomitant]
     Active Substance: SACUBITRIL\VALSARTAN
     Indication: Hypertension
     Dosage: 200 MG, QD (AFTER BREAKFAST)
     Route: 048
     Dates: end: 202503
  17. ENTRESTO [Concomitant]
     Active Substance: SACUBITRIL\VALSARTAN
     Dosage: 200 MG, QD (AFTER BREAKFAST)
     Route: 048
     Dates: start: 20250330
  18. CAMOSTAT MESYLATE [Concomitant]
     Active Substance: CAMOSTAT MESYLATE
     Indication: Pancreatic carcinoma
     Dosage: 200 MG, TID (AFTER MEALS)
     Route: 048
     Dates: end: 202503
  19. CAMOSTAT MESYLATE [Concomitant]
     Active Substance: CAMOSTAT MESYLATE
     Dosage: 200 MG, TID (AFTER MEALS)
     Route: 048
     Dates: start: 20250330
  20. FIASP [Concomitant]
     Active Substance: INSULIN ASPART
     Indication: Diabetes mellitus
     Dosage: 4 UNITS, TID (AFTER MEALS)
     Route: 065
     Dates: end: 202503
  21. FIASP [Concomitant]
     Active Substance: INSULIN ASPART
     Dosage: 4 UNITS, TID (AFTER MEALS)
     Route: 065
     Dates: start: 20250330
  22. TRESIBA [Concomitant]
     Active Substance: INSULIN DEGLUDEC
     Indication: Diabetes mellitus
     Dosage: 2 UNITS, TID (AFTER MEALS)
     Route: 065
     Dates: end: 202503
  23. TRESIBA [Concomitant]
     Active Substance: INSULIN DEGLUDEC
     Dosage: 2 UNITS, TID (AFTER MEALS)
     Route: 065
     Dates: start: 20250330
  24. LEVOLEUCOVORIN CALCIUM [Concomitant]
     Active Substance: LEVOLEUCOVORIN CALCIUM
     Indication: Pancreatic carcinoma
     Route: 042
     Dates: start: 20241209

REACTIONS (2)
  - Enterocolitis [Recovering/Resolving]
  - Off label use [Recovered/Resolved]

NARRATIVE: CASE EVENT DATE: 20241209
